FAERS Safety Report 15578009 (Version 1)
Quarter: 2018Q4

REPORT INFORMATION
  Report Type: Spontaneous
  Country: JP (occurrence: JP)
  Receive Date: 20181102
  Receipt Date: 20181102
  Transmission Date: 20190205
  Serious: Yes (Other)
  Sender: FDA-Public Use
  Company Number: PHHY2018JP142770

PATIENT

DRUGS (4)
  1. PACLITAXEL. [Suspect]
     Active Substance: PACLITAXEL
     Indication: ADENOCARCINOMA GASTRIC
     Dosage: 60 MG/M2, UNK
     Route: 033
  2. PACLITAXEL. [Suspect]
     Active Substance: PACLITAXEL
     Dosage: 80 MG/M2, (21-DAY CYCLE OVER 1 H ON DAYS 1 AND 8)
     Route: 042
  3. CISPLATIN. [Suspect]
     Active Substance: CISPLATIN
     Indication: ADENOCARCINOMA GASTRIC
     Dosage: 30 MG/M2, (21-DAY CYCLE OVER 1 H ON DAYS 1 AND 8)
     Route: 042
  4. TS-1 [Suspect]
     Active Substance: GIMERACIL\OTERACIL\TEGAFUR
     Indication: ADENOCARCINOMA GASTRIC
     Dosage: 80 MG/M2, QD (FOR 14 DAYS FOLLOWED BY 7 DAYS OF REST)
     Route: 048

REACTIONS (2)
  - Product use in unapproved indication [Unknown]
  - Pancreatic fistula [Unknown]
